FAERS Safety Report 6806724-0 (Version None)
Quarter: 2010Q2

REPORT INFORMATION
  Report Type: 
  Country: None (occurrence: None)
  Receive Date: 20100629
  Receipt Date: 20080611
  Transmission Date: 20101027
  Serious: No
  Sender: FDA-Public Use
  Company Number: US-PFIZER INC-2008034286

PATIENT
  Sex: Female
  Weight: 81.65 kg

DRUGS (2)
  1. TIKOSYN [Suspect]
     Indication: ARRHYTHMIA
     Dates: start: 20060101
  2. DRUG, UNSPECIFIED [Concomitant]

REACTIONS (1)
  - ARTHRALGIA [None]
